FAERS Safety Report 9735855 (Version 1)
Quarter: 2013Q4

REPORT INFORMATION
  Report Type: Spontaneous
  Country: US (occurrence: US)
  Receive Date: 20131206
  Receipt Date: 20131206
  Transmission Date: 20140711
  Serious: No
  Sender: FDA-Public Use
  Company Number: US-GILEAD-2009-0024016

PATIENT
  Sex: Female
  Weight: 72.57 kg

DRUGS (6)
  1. LETAIRIS [Suspect]
     Indication: PULMONARY ARTERIAL HYPERTENSION
     Route: 048
     Dates: start: 20090811
  2. REVATIO [Concomitant]
  3. FUROSEMIDE [Concomitant]
  4. DILTIAZEM [Concomitant]
  5. CARDI-OMEGA 3 [Concomitant]
  6. VITAMIN C [Concomitant]

REACTIONS (1)
  - Rhinorrhoea [Unknown]
